FAERS Safety Report 9831406 (Version 2)
Quarter: 2014Q1

REPORT INFORMATION
  Report Type: Report from Study
  Country: CA (occurrence: CA)
  Receive Date: 20140121
  Receipt Date: 20140121
  Transmission Date: 20141002
  Serious: Yes (Hospitalization, Other)
  Sender: FDA-Public Use
  Company Number: CA-BRISTOL-MYERS SQUIBB COMPANY-15922032

PATIENT
  Age: 79 Year
  Sex: Male

DRUGS (34)
  1. ORENCIA FOR INJ [Suspect]
     Indication: RHEUMATOID ARTHRITIS
     Dosage: NO:13,INF:8AG,28OT,27DC11,23JN,28MR12,18JUN12,18JUL12,15AG1F66433-OC2013,1G64569-MAR14;1L66305-SE14
     Route: 042
     Dates: start: 20110711
  2. MORPHINE SULFATE [Suspect]
  3. PREDNISONE [Suspect]
  4. OMEPRAZOLE [Concomitant]
     Dosage: MYLAN OMEPRAZOLE
  5. DICLOFENAC [Concomitant]
     Dosage: PMS DICLOFENAC
  6. SENNA [Concomitant]
     Dosage: 1DF= 2TABS
  7. CALCITONIN [Concomitant]
     Route: 045
  8. PARIET [Concomitant]
     Dosage: TABS
  9. VITAMIN D [Concomitant]
  10. CALCIUM [Concomitant]
  11. FLUOROMETHOLONE [Concomitant]
  12. MIRTAZAPINE [Concomitant]
     Dosage: HS
  13. FENTANYL PATCH [Concomitant]
  14. PERCOCET [Concomitant]
     Dosage: 1DF: 1 TABS
  15. DETROL LA [Concomitant]
  16. GABAPENTIN [Concomitant]
  17. CELEBREX [Concomitant]
  18. TAMSULOSIN HCL [Concomitant]
  19. OXYCODONE [Concomitant]
  20. VOLTAREN [Concomitant]
  21. TYLENOL #3 [Concomitant]
  22. TYLENOL [Concomitant]
  23. RABEPRAZOLE [Concomitant]
  24. ALENDRONATE [Concomitant]
  25. CLEXANE [Concomitant]
  26. PRED FORTE [Concomitant]
     Dosage: EYE DROPS
  27. NYSTATIN [Concomitant]
  28. COLACE [Concomitant]
  29. TRAZODONE HCL [Concomitant]
  30. ATIVAN [Concomitant]
  31. LACRI-LUBE [Concomitant]
     Dosage: OINTMENT
  32. DIPHENHYDRAMINE HCL [Concomitant]
  33. ACETAMINOPHEN [Concomitant]
  34. METHYLPREDNISOLONE [Concomitant]

REACTIONS (22)
  - Spinal compression fracture [Not Recovered/Not Resolved]
  - Fall [Unknown]
  - Pneumonia [Unknown]
  - Herpes zoster [Unknown]
  - Spinal pain [Unknown]
  - Depressed mood [Unknown]
  - Confusional state [Unknown]
  - Fear [Unknown]
  - Hallucination [Unknown]
  - Insomnia [Unknown]
  - Heart rate irregular [Not Recovered/Not Resolved]
  - Pain [Unknown]
  - Urinary tract disorder [Unknown]
  - Pollakiuria [Unknown]
  - Middle ear effusion [Recovered/Resolved]
  - Sinusitis [Unknown]
  - Pain in extremity [Recovered/Resolved]
  - Flatulence [Unknown]
  - Muscular weakness [Unknown]
  - Eructation [Unknown]
  - Breast tenderness [Unknown]
  - Drug ineffective [Unknown]
